FAERS Safety Report 10903468 (Version 5)
Quarter: 2015Q2

REPORT INFORMATION
  Report Type: Report from Study
  Country: US (occurrence: US)
  Receive Date: 20150311
  Receipt Date: 20150624
  Transmission Date: 20150821
  Serious: Yes (Hospitalization, Other)
  Sender: FDA-Public Use
  Company Number: US-GILEAD-2015-0141422

PATIENT
  Age: 41 Year
  Sex: Male

DRUGS (5)
  1. AMBRISENTAN [Suspect]
     Active Substance: AMBRISENTAN
     Indication: PRODUCT USED FOR UNKNOWN INDICATION
     Dosage: 10 MG, QD
     Route: 065
     Dates: start: 20100924
  2. COUMADIN [Concomitant]
     Active Substance: WARFARIN SODIUM
  3. REVATIO [Concomitant]
     Active Substance: SILDENAFIL CITRATE
  4. ORENITRAM [Concomitant]
     Active Substance: TREPROSTINIL
  5. TYVASO [Concomitant]
     Active Substance: TREPROSTINIL

REACTIONS (7)
  - Gastrointestinal tube insertion [Unknown]
  - Malaise [Unknown]
  - Lung disorder [Unknown]
  - Mechanical ventilation [Unknown]
  - Pneumonia [Unknown]
  - Wrong technique in drug usage process [Unknown]
  - Influenza [Unknown]
